FAERS Safety Report 6330546-0 (Version None)
Quarter: 2009Q3

REPORT INFORMATION
  Report Type: 
  Country: None (occurrence: None)
  Receive Date: 20090826
  Receipt Date: 20090826
  Transmission Date: 20100115
  Serious: Yes (Other)
  Sender: FDA-Public Use
  Company Number: None

PATIENT
  Age: 34 Year
  Sex: Female
  Weight: 139.7079 kg

DRUGS (1)
  1. ALLI [Suspect]
     Indication: OBESITY
     Dosage: 1 PILL 3 TIMES DAILY PO
     Route: 048
     Dates: start: 20090101, end: 20090630

REACTIONS (2)
  - HYPOAESTHESIA [None]
  - PALPITATIONS [None]
